FAERS Safety Report 21845399 (Version 2)
Quarter: 2023Q1

REPORT INFORMATION
  Report Type: Spontaneous
  Country: US (occurrence: US)
  Receive Date: 20230111
  Receipt Date: 20230322
  Transmission Date: 20230418
  Serious: No
  Sender: FDA-Public Use
  Company Number: US-JNJFOC-20230103366

PATIENT
  Age: 49 Year
  Sex: Female
  Weight: 90.800 kg

DRUGS (3)
  1. TREMFYA [Suspect]
     Active Substance: GUSELKUMAB
     Indication: Psoriasis
     Route: 058
     Dates: start: 20220130
  2. SYNTHROID [Concomitant]
     Active Substance: LEVOTHYROXINE SODIUM
     Indication: Thyroid disorder
  3. CLOBETASOL PROPIONATE [Concomitant]
     Active Substance: CLOBETASOL PROPIONATE
     Indication: Psoriasis

REACTIONS (4)
  - Device issue [Unknown]
  - Device leakage [Unknown]
  - Malaise [Unknown]
  - Injection site pain [Unknown]

NARRATIVE: CASE EVENT DATE: 20221230
